FAERS Safety Report 23656272 (Version 3)
Quarter: 2024Q2

REPORT INFORMATION
  Report Type: Other
  Country: MX (occurrence: None)
  Receive Date: 20240321
  Receipt Date: 20240404
  Transmission Date: 20240716
  Serious: Yes (Hospitalization)
  Sender: FDA-Public Use
  Company Number: MX-ROCHE-3527755

PATIENT
  Age: 4 Year
  Sex: Male
  Weight: 21 kg

DRUGS (9)
  1. PULMOZYME [Suspect]
     Active Substance: DORNASE ALFA
     Indication: Cystic fibrosis
     Dosage: NEBULIZATION. 2.5 MG/2.5 ML VIAL WITH PARI CHAMBER, EVERY 24 HOURS (08:00 AM).
     Route: 055
     Dates: start: 20220422
  2. ALBUTEROL [Concomitant]
     Active Substance: ALBUTEROL
     Dosage: 3 MILLIGRAMS BY VOLUME IN 3 MILLILITERS OF 0.9% PHYSIOLOGICAL SOLUTION, INHALOTERAPY
     Route: 055
  3. HYPERTONIC SOLUTIONS [Concomitant]
     Dosage: 17.7% SODIUM CHLORIDE 2.2 MILLILITERS + 0.9% PHYSIOLOGICAL SOLUTION 3.8 MILLILITERS
     Route: 055
  4. TOBRAMYCIN [Concomitant]
     Active Substance: TOBRAMYCIN
     Dosage: PULMONARY PHYSIOTHERAPY, WITH PARI CHAMBER (41)
     Route: 055
     Dates: start: 20240120
  5. HEMOSIN-K [Concomitant]
  6. AZITHROMYCIN [Concomitant]
     Active Substance: AZITHROMYCIN
  7. SECNIDAL [Concomitant]
  8. BETAMETHASONE [Concomitant]
     Active Substance: BETAMETHASONE\BETAMETHASONE DIPROPIONATE
  9. LEVOFLOXACIN [Concomitant]
     Active Substance: LEVOFLOXACIN

REACTIONS (18)
  - Off label use [Unknown]
  - Pseudomonas infection [Not Recovered/Not Resolved]
  - Parainfluenzae virus infection [Unknown]
  - Inflammation [Unknown]
  - Infection [Recovered/Resolved]
  - Cough [Unknown]
  - Productive cough [Unknown]
  - Rhinorrhoea [Unknown]
  - Odynophagia [Unknown]
  - Pyrexia [Unknown]
  - Weight decreased [Unknown]
  - Administration site extravasation [Unknown]
  - Malabsorption [Unknown]
  - Extravasation [Unknown]
  - Chlamydial infection [Not Recovered/Not Resolved]
  - Abnormal faeces [Unknown]
  - Pseudomonas infection [Unknown]
  - Steatorrhoea [Unknown]

NARRATIVE: CASE EVENT DATE: 20220422
